FAERS Safety Report 6036466-3 (Version None)
Quarter: 2009Q1

REPORT INFORMATION
  Report Type: 
  Country: None (occurrence: None)
  Receive Date: 20090112
  Receipt Date: 20090105
  Transmission Date: 20090719
  Serious: Yes (Hospitalization)
  Sender: FDA-Public Use
  Company Number: 2008EU002964

PATIENT
  Age: 61 Year
  Sex: Female

DRUGS (7)
  1. PROGRAF [Suspect]
     Indication: LIVER TRANSPLANT
     Dosage: 1.5 MG, BID, ORAL
     Route: 048
     Dates: start: 20080907, end: 20081001
  2. CELLCEPT [Concomitant]
  3. BACTRIM [Concomitant]
  4. GANCICLOVIR SODIUM [Concomitant]
  5. METOPROLOL SUCCINATE [Concomitant]
  6. LORAZEPAM [Concomitant]
  7. ENOXAPARIN SODIUM [Concomitant]

REACTIONS (3)
  - ANAL HAEMORRHAGE [None]
  - RECTAL HAEMORRHAGE [None]
  - TOXIC ENCEPHALOPATHY [None]
